FAERS Safety Report 8486995-8 (Version None)
Quarter: 2012Q3

REPORT INFORMATION
  Report Type: 
  Country: None (occurrence: None)
  Receive Date: 20120704
  Receipt Date: 20120628
  Transmission Date: 20120928
  Serious: Yes (Other)
  Sender: FDA-Public Use
  Company Number: PHFR2011GB006812

PATIENT
  Sex: Male

DRUGS (9)
  1. PREGABALIN [Concomitant]
     Indication: PAIN
     Dosage: 300 MG, UNK
     Route: 048
     Dates: start: 20111001
  2. DEPAKOTE [Concomitant]
     Indication: AFFECTIVE DISORDER
     Dosage: 2 G, UNK
     Route: 048
  3. NETOPAM [Concomitant]
     Indication: PAIN
     Dosage: 60 MG, UNK
     Route: 048
  4. SULPIRIDE [Concomitant]
     Indication: PSYCHOTIC DISORDER
     Dosage: 600 MG, UNK
     Route: 048
  5. RAMIPRIL [Concomitant]
     Indication: HYPERTENSION
     Dosage: 2.5 MG, UNK
     Route: 048
  6. ACETAMINOPHEN AND CODEINE PHOSPHATE [Concomitant]
     Indication: PAIN
     Dosage: 8 TABLET
     Route: 048
  7. DICLOFENAC SODIUM [Concomitant]
     Indication: PAIN
     Dosage: 150 MG, UNK
     Route: 048
  8. CLOZARIL [Suspect]
     Indication: PSYCHOTIC DISORDER
     Dosage: 275 MG, UNK
     Route: 048
     Dates: start: 20111122
  9. SENNA-MINT WAF [Concomitant]
     Indication: CONSTIPATION
     Dosage: UNK UKN, UNK

REACTIONS (1)
  - DIFFERENTIAL WHITE BLOOD CELL COUNT ABNORMAL [None]
